FAERS Safety Report 16730756 (Version 1)
Quarter: 2019Q3

REPORT INFORMATION
  Report Type: Spontaneous
  Country: CN (occurrence: CN)
  Receive Date: 20190822
  Receipt Date: 20190822
  Transmission Date: 20191005
  Serious: Yes (Life-Threatening, Hospitalization, Disabling)
  Sender: FDA-Public Use
  Company Number: CN-ROCHE-2375308

PATIENT
  Age: 60 Year
  Sex: Male
  Weight: 60 kg

DRUGS (4)
  1. TACROLIMUS. [Suspect]
     Active Substance: TACROLIMUS
     Indication: HEART TRANSPLANT
     Dosage: DF=CAPSULE
     Route: 048
     Dates: start: 20190123, end: 20190123
  2. METHYLPREDNISOLONE. [Suspect]
     Active Substance: METHYLPREDNISOLONE
     Indication: HEART TRANSPLANT
     Route: 048
     Dates: start: 20190123, end: 20190123
  3. TAMIFLU [Suspect]
     Active Substance: OSELTAMIVIR PHOSPHATE
     Indication: H1N1 INFLUENZA
     Route: 048
     Dates: start: 20190123
  4. CELLCEPT [Suspect]
     Active Substance: MYCOPHENOLATE MOFETIL\MYCOPHENOLATE MOFETIL HYDROCHLORIDE
     Indication: HEART TRANSPLANT
     Route: 048
     Dates: start: 20190123, end: 20190123

REACTIONS (3)
  - Intentional product use issue [Unknown]
  - Off label use [Unknown]
  - Lung infection [Recovering/Resolving]
